FAERS Safety Report 13609793 (Version 1)
Quarter: 2017Q2

REPORT INFORMATION
  Report Type: Spontaneous
  Country: US (occurrence: US)
  Receive Date: 20170602
  Receipt Date: 20170602
  Transmission Date: 20170830
  Serious: No
  Sender: FDA-Public Use
  Company Number: US-PFIZER INC-2983883

PATIENT
  Age: 31 Year
  Sex: Male
  Weight: 108 kg

DRUGS (4)
  1. CYTARABINE. [Suspect]
     Active Substance: CYTARABINE
     Indication: ACUTE MYELOID LEUKAEMIA
     Dosage: 200 MG, DAILY X 7
     Route: 042
     Dates: start: 20150801, end: 20150807
  2. IDARUBICIN [Concomitant]
     Active Substance: IDARUBICIN
     Indication: ACUTE MYELOID LEUKAEMIA
     Dosage: 16 MG, DAILY X 3
     Route: 042
     Dates: start: 20150801, end: 20150803
  3. CYTARABINE. [Suspect]
     Active Substance: CYTARABINE
     Dosage: 200 MG, DAILY X 7
     Route: 042
     Dates: start: 20150801, end: 20150807
  4. CYTARABINE. [Suspect]
     Active Substance: CYTARABINE
     Dosage: 200 MG, DAILY X 7
     Route: 042
     Dates: start: 20150801, end: 20150807

REACTIONS (2)
  - Product quality issue [Unknown]
  - Drug ineffective [Unknown]

NARRATIVE: CASE EVENT DATE: 20150101
